FAERS Safety Report 19075665 (Version 1)
Quarter: 2021Q1

REPORT INFORMATION
  Report Type: Other
  Country: FR (occurrence: FR)
  Receive Date: 20210330
  Receipt Date: 20210330
  Transmission Date: 20210420
  Serious: Yes (Other)
  Sender: FDA-Public Use
  Company Number: FR-GEHPL-2021CSU001537AA

PATIENT

DRUGS (16)
  1. VISIPAQUE [Suspect]
     Active Substance: IODIXANOL
     Indication: PRODUCT USED FOR UNKNOWN INDICATION
  2. ENOXAPARINE SODIQUE [Suspect]
     Active Substance: ENOXAPARIN SODIUM
     Indication: CARDIOVASCULAR EVENT PROPHYLAXIS
     Route: 058
     Dates: start: 20190303, end: 20190308
  3. FYCOMPA [Concomitant]
     Active Substance: PERAMPANEL
     Indication: EPILEPSY
     Dosage: 1 DF, QD
     Route: 048
     Dates: start: 20190215
  4. KEPPRA [Concomitant]
     Active Substance: LEVETIRACETAM
     Indication: EPILEPSY
     Dosage: UNK
     Route: 048
     Dates: start: 201901, end: 20190215
  5. VISIPAQUE [Suspect]
     Active Substance: IODIXANOL
     Indication: SCAN WITH CONTRAST
     Dosage: 90ML
     Route: 042
     Dates: start: 20190305, end: 20190305
  6. DIAZEPAM. [Suspect]
     Active Substance: DIAZEPAM
     Indication: EPILEPSY
     Dosage: 5 MG, QD
     Route: 048
     Dates: start: 20190227, end: 20190227
  7. ZOPHREN [ONDANSETRON HYDROCHLORIDE] [Concomitant]
     Active Substance: ONDANSETRON
     Indication: NAUSEA
     Dosage: 1 DF
     Route: 048
     Dates: start: 20190302, end: 20190302
  8. AMITRIPTYLINE [Concomitant]
     Active Substance: AMITRIPTYLINE
     Indication: HEADACHE
     Route: 042
     Dates: start: 20190301, end: 20190305
  9. PARACETAMOL [Concomitant]
     Active Substance: ACETAMINOPHEN
     Indication: PAIN
     Route: 048
     Dates: start: 20190227, end: 20190311
  10. MOVICOL PLAIN [Concomitant]
     Active Substance: POLYETHYLENE GLYCOL 3350\POTASSIUM CHLORIDE\SODIUM BICARBONATE\SODIUM CHLORIDE
     Indication: CONSTIPATION
     Dosage: 1 DF
     Route: 048
     Dates: start: 20190304, end: 20190304
  11. ACUPAN [Suspect]
     Active Substance: NEFOPAM HYDROCHLORIDE
     Indication: PAIN
     Route: 048
     Dates: start: 20190228, end: 20190303
  12. GAVISCON [SODIUM ALGINATE;SODIUM BICARBONATE] [Concomitant]
     Active Substance: SODIUM ALGINATE\SODIUM BICARBONATE
     Indication: GASTROOESOPHAGEAL REFLUX DISEASE
     Dosage: 1 DF
     Route: 048
     Dates: start: 20190301, end: 20190301
  13. LAMICTAL [Concomitant]
     Active Substance: LAMOTRIGINE
     Indication: EPILEPSY
     Dosage: 1 DF, QD
     Route: 048
  14. OXYCODONE [Concomitant]
     Active Substance: OXYCODONE
     Indication: PAIN
     Route: 048
     Dates: start: 20190227, end: 20190227
  15. KETOPROFENE [KETOPROFEN] [Concomitant]
     Active Substance: KETOPROFEN
     Indication: HEADACHE
     Route: 042
     Dates: start: 20190227, end: 20190302
  16. URBANYL [Concomitant]
     Active Substance: CLOBAZAM
     Indication: EPILEPSY
     Dosage: 1 DF, QD
     Route: 048
     Dates: start: 20190227, end: 20190305

REACTIONS (2)
  - Cell death [Recovered/Resolved]
  - Toxic skin eruption [Recovered/Resolved]

NARRATIVE: CASE EVENT DATE: 20190305
